FAERS Safety Report 8851914 (Version 3)
Quarter: 2012Q4

REPORT INFORMATION
  Report Type: 
  Country: JP (occurrence: JP)
  Receive Date: 20121022
  Receipt Date: 20121226
  Transmission Date: 20130627
  Serious: Yes (Hospitalization, Other)
  Sender: FDA-Public Use
  Company Number: PHHY2012JP093961

PATIENT

DRUGS (1)
  1. CARBAMAZEPINE [Suspect]
     Indication: EPILEPSY
     Route: 048
     Dates: start: 2002, end: 2011

REACTIONS (3)
  - Hyperparathyroidism secondary [Unknown]
  - Metabolic alkalosis [Unknown]
  - Hypocalcaemia [Recovered/Resolved]
